FAERS Safety Report 7912284-3 (Version None)
Quarter: 2011Q4

REPORT INFORMATION
  Report Type: 
  Country: None (occurrence: None)
  Receive Date: 20111114
  Receipt Date: 20111103
  Transmission Date: 20120403
  Serious: Yes (Other)
  Sender: FDA-Public Use
  Company Number: US-BAYER-2011-019001

PATIENT
  Age: 30 Year
  Sex: Female
  Weight: 63.492 kg

DRUGS (6)
  1. DARVOCET [Concomitant]
  2. NAPROXEN (ALEVE) [Concomitant]
     Dosage: UNK UNK, PRN
     Route: 048
     Dates: start: 19940101
  3. PROTONIX [Concomitant]
  4. MULTI-VITAMINS [Concomitant]
  5. NAPROSYN [Concomitant]
  6. YAZ [Suspect]
     Indication: CONTRACEPTION
     Dosage: UNK
     Route: 048
     Dates: start: 20050101, end: 20080101

REACTIONS (4)
  - CHOLECYSTECTOMY [None]
  - CHOLECYSTITIS CHRONIC [None]
  - PAIN [None]
  - INJURY [None]
